FAERS Safety Report 15102091 (Version 4)
Quarter: 2019Q2

REPORT INFORMATION
  Report Type: Spontaneous
  Country: US (occurrence: US)
  Receive Date: 20180703
  Receipt Date: 20190426
  Transmission Date: 20190711
  Serious: Yes (Other)
  Sender: FDA-Public Use
  Company Number: US-SA-2018SA166049

PATIENT
  Age: 71 Year
  Sex: Male

DRUGS (10)
  1. AUBAGIO [Suspect]
     Active Substance: TERIFLUNOMIDE
     Dosage: 7 MG, QD
     Route: 048
     Dates: start: 201608
  2. CITALOPRAM [Concomitant]
     Active Substance: CITALOPRAM HYDROBROMIDE
  3. MULTIVITAMIN [ASCORBIC ACID;BIOTIN;CALCIUM PANTOTHENATE;CYANOCOBALAMIN [Concomitant]
     Active Substance: VITAMINS
  4. AUBAGIO [Suspect]
     Active Substance: TERIFLUNOMIDE
     Indication: MULTIPLE SCLEROSIS
     Dosage: 7 MG, QD
     Route: 048
     Dates: start: 2013
  5. PROTONIX [OMEPRAZOLE] [Concomitant]
     Active Substance: OMEPRAZOLE
  6. PRESERVISION AREDS [Concomitant]
     Active Substance: MINERALS\VITAMINS
  7. FISH OIL [Concomitant]
     Active Substance: FISH OIL
  8. LIPITOR [Concomitant]
     Active Substance: ATORVASTATIN CALCIUM
  9. TRAMADOL. [Concomitant]
     Active Substance: TRAMADOL
  10. VITAMIN D3 [Concomitant]
     Active Substance: CHOLECALCIFEROL

REACTIONS (11)
  - Alanine aminotransferase increased [Unknown]
  - Intentional dose omission [Unknown]
  - Memory impairment [Unknown]
  - Impaired driving ability [Unknown]
  - Depressed mood [Unknown]
  - Decreased interest [Unknown]
  - Depression [Unknown]
  - Intentional product misuse [Unknown]
  - Weight increased [Unknown]
  - Asthenia [Unknown]
  - Macular degeneration [Unknown]

NARRATIVE: CASE EVENT DATE: 201803
